FAERS Safety Report 15969735 (Version 1)
Quarter: 2019Q1

REPORT INFORMATION
  Report Type: Report from Study
  Country: JP (occurrence: JP)
  Receive Date: 20190215
  Receipt Date: 20190215
  Transmission Date: 20190418
  Serious: Yes (Hospitalization)
  Sender: FDA-Public Use
  Company Number: JP-PFIZER INC-2019072269

PATIENT
  Age: 49 Year
  Sex: Female
  Weight: 44 kg

DRUGS (7)
  1. KAKKONTO [CINNAMOMUM CASSIA BARK;EPHEDRA SPP. HERB;GLYCYRRHIZA SPP. RO [Concomitant]
     Dosage: UNK
     Route: 048
     Dates: start: 20160120
  2. RAPALIMUS [Suspect]
     Active Substance: SIROLIMUS
     Dosage: 2 MG, 1X/DAY
     Route: 048
     Dates: start: 20160609
  3. NEXIUM I.V. [Concomitant]
     Active Substance: ESOMEPRAZOLE SODIUM
     Dosage: UNK
     Route: 048
  4. GOREISAN [ALISMA PLANTAGO-AQUATICA VAR. ORIENTALE TUBER;ATRACTYLODES S [Concomitant]
     Dosage: UNK
     Route: 048
     Dates: end: 20160120
  5. MICARDIS [Concomitant]
     Active Substance: TELMISARTAN
     Dosage: UNK
     Route: 048
     Dates: start: 20160316
  6. RAPALIMUS [Suspect]
     Active Substance: SIROLIMUS
     Indication: LYMPHANGIOLEIOMYOMATOSIS
     Dosage: 1 MG, 1X/DAY
     Route: 048
     Dates: start: 20151222, end: 20160609
  7. ONBREZ [Concomitant]
     Active Substance: INDACATEROL
     Indication: LYMPHANGIOLEIOMYOMATOSIS
     Dosage: UNK
     Route: 055
     Dates: start: 20160316

REACTIONS (5)
  - Blepharitis [Recovering/Resolving]
  - Stomatitis [Unknown]
  - Constipation [Recovering/Resolving]
  - Pneumothorax spontaneous [Recovered/Resolved]
  - Pruritus [Not Recovered/Not Resolved]

NARRATIVE: CASE EVENT DATE: 20151224
